FAERS Safety Report 8359881-1 (Version None)
Quarter: 2012Q2

REPORT INFORMATION
  Report Type: 
  Country: None (occurrence: None)
  Receive Date: 20120515
  Receipt Date: 20120509
  Transmission Date: 20120825
  Serious: Yes (Other)
  Sender: FDA-Public Use
  Company Number: PHFR2012GB002859

PATIENT
  Sex: Male

DRUGS (5)
  1. PROCYCLIDINE HYDROCHLORIDE 2MG TAB [Concomitant]
     Dosage: 5 MG, DAILY
  2. CLOZARIL [Suspect]
     Indication: SCHIZOPHRENIA
     Dosage: 200 MG, BID
     Route: 048
     Dates: start: 20010701
  3. RAMIPRIL [Concomitant]
     Dosage: 5 MG, PER DAY
  4. AMISULPRIDE [Concomitant]
     Dosage: 350 MG, (200 MG AND 150 MG)
  5. SIMVASTATIN [Concomitant]
     Dosage: 20 MG, NOCTE

REACTIONS (3)
  - TYPE 2 DIABETES MELLITUS [None]
  - MICROALBUMINURIA [None]
  - EOSINOPHIL COUNT DECREASED [None]
